FAERS Safety Report 12255886 (Version 1)
Quarter: 2016Q2

REPORT INFORMATION
  Report Type: Spontaneous
  Country: US (occurrence: None)
  Receive Date: 20160411
  Receipt Date: 20160411
  Transmission Date: 20160815
  Serious: No
  Sender: FDA-Public Use
  Company Number: None

PATIENT
  Sex: Male

DRUGS (4)
  1. AMLODIPINE [Suspect]
     Active Substance: AMLODIPINE BESYLATE
  2. METFORMIN [Suspect]
     Active Substance: METFORMIN HYDROCHLORIDE
  3. NOVOLOG [Suspect]
     Active Substance: INSULIN ASPART
  4. GLIMPIRIDE [Suspect]
     Active Substance: GLIMEPIRIDE

REACTIONS (3)
  - Stress [None]
  - Frustration tolerance decreased [None]
  - Blood glucose increased [None]
